FAERS Safety Report 8958607 (Version 1)
Quarter: 2012Q4

REPORT INFORMATION
  Report Type: Spontaneous
  Country: US (occurrence: None)
  Receive Date: 20121203
  Receipt Date: 20121203
  Transmission Date: 20130627
  Serious: Yes (Hospitalization, Other)
  Sender: FDA-Public Use
  Company Number: HA12-344-AE (PATIENT 2)

PATIENT
  Age: 25 Year
  Sex: Female
  Weight: 56.7 kg

DRUGS (1)
  1. METFORMIN [Suspect]
     Indication: MUSCLE PAIN
     Dosage: Unknown - 10/16/2012
1 tablet,  one dose,  oral
     Route: 048
     Dates: end: 20121016

REACTIONS (12)
  - Drug hypersensitivity [None]
  - Conversion disorder [None]
  - Dysarthria [None]
  - Peripheral coldness [None]
  - Headache [None]
  - Amnesia [None]
  - Neurological symptom [None]
  - Hemiparesis [None]
  - No reaction on previous exposure to drug [None]
  - Product quality issue [None]
  - Balance disorder [None]
  - Coordination abnormal [None]
